FAERS Safety Report 10779461 (Version 2)
Quarter: 2015Q1

REPORT INFORMATION
  Report Type: Spontaneous
  Country: US (occurrence: US)
  Receive Date: 20150210
  Receipt Date: 20150226
  Transmission Date: 20150721
  Serious: Yes (Other)
  Sender: FDA-Public Use
  Company Number: US-APOTEX-2015AP006380

PATIENT
  Sex: Female

DRUGS (1)
  1. PAXIL [Suspect]
     Active Substance: PAROXETINE HYDROCHLORIDE
     Indication: DEPRESSION
     Dosage: 20MG, 40MG OR 60MG
     Dates: start: 199904, end: 20010707

REACTIONS (5)
  - Drug ineffective [Unknown]
  - Depression [Unknown]
  - Maternal exposure during pregnancy [Unknown]
  - Suicide attempt [Unknown]
  - Intentional self-injury [Unknown]
